FAERS Safety Report 7528522-5 (Version None)
Quarter: 2011Q2

REPORT INFORMATION
  Report Type: 
  Country: None (occurrence: None)
  Receive Date: 20110607
  Receipt Date: 20110105
  Transmission Date: 20111010
  Serious: No
  Sender: FDA-Public Use
  Company Number: US-ASTRAZENECA-2011SE02459

PATIENT
  Age: 88 Year
  Sex: Male

DRUGS (3)
  1. PRILOSEC OTC [Suspect]
     Route: 048
     Dates: start: 20101227
  2. PEPTIC MEDICATIONS [Concomitant]
     Dosage: UNKNOWN
  3. CARDIAC THERAPY [Concomitant]
     Dosage: UNKNOWN

REACTIONS (1)
  - URINARY INCONTINENCE [None]
